FAERS Safety Report 9870132 (Version 1)
Quarter: 2014Q1

REPORT INFORMATION
  Report Type: Spontaneous
  Country: US (occurrence: None)
  Receive Date: 20140204
  Receipt Date: 20140204
  Transmission Date: 20141002
  Serious: Yes (Disabling)
  Sender: FDA-Public Use
  Company Number: None

PATIENT
  Age: 26 Year
  Sex: Female
  Weight: 58.97 kg

DRUGS (3)
  1. METRONIDAZOLE [Suspect]
     Indication: VAGINAL INFECTION
     Route: 048
     Dates: start: 20140115, end: 20140119
  2. PROGESTERONE [Concomitant]
  3. MULTIVITAMIN [Concomitant]

REACTIONS (7)
  - Dysgeusia [None]
  - Vomiting [None]
  - Dizziness [None]
  - Pyrexia [None]
  - Pain [None]
  - Pain in extremity [None]
  - Asthenia [None]
